FAERS Safety Report 25059292 (Version 1)
Quarter: 2025Q1

REPORT INFORMATION
  Report Type: Spontaneous
  Country: CA (occurrence: CA)
  Receive Date: 20250310
  Receipt Date: 20250310
  Transmission Date: 20250408
  Serious: Yes (Other)
  Sender: MYLAN
  Company Number: CA-MYLANLABS-2025M1019944

PATIENT
  Sex: Female

DRUGS (3)
  1. LATANOPROST [Interacting]
     Active Substance: LATANOPROST
     Indication: Glaucoma
  2. LATANOPROST [Interacting]
     Active Substance: LATANOPROST
     Indication: Glaucoma
  3. CARBAMAZEPINE [Concomitant]
     Active Substance: CARBAMAZEPINE

REACTIONS (2)
  - Ataxia [Unknown]
  - Drug interaction [Unknown]
